FAERS Safety Report 8496381-2 (Version None)
Quarter: 2012Q3

REPORT INFORMATION
  Report Type: 
  Country: None (occurrence: None)
  Receive Date: 20120709
  Receipt Date: 20120703
  Transmission Date: 20120928
  Serious: No
  Sender: FDA-Public Use
  Company Number: US-PFIZER INC-2012144456

PATIENT
  Sex: Male
  Weight: 102 kg

DRUGS (19)
  1. CHANTIX [Suspect]
     Indication: SMOKING CESSATION THERAPY
     Dosage: 0.5 MG, DAILY
     Route: 048
     Dates: start: 20120610, end: 20120101
  2. CRESTOR [Concomitant]
     Dosage: 20 BEDTIME
  3. HYDROCHLOROTHIAZIDE [Concomitant]
     Dosage: 25 EVERY MORNING
  4. AMBIEN [Suspect]
     Indication: SLEEP DISORDER
     Dosage: UNK
  5. TAMSULOSIN HYDROCHLORIDE [Concomitant]
     Indication: DYSURIA
     Dosage: 0.4 MG, DAILY,AT NIGHT
  6. LORTAB [Concomitant]
     Indication: ARTHRALGIA
     Dosage: 10/325, 3X/DAY (1/2 TAB), AS NEEDED
  7. GLUCOPHAGE [Concomitant]
     Indication: DIABETES MELLITUS
     Dosage: 500 MG (1/4 TAB AM, 1/2 TAB PM)
  8. CHANTIX [Suspect]
     Dosage: UNK, DAILY
     Route: 048
     Dates: start: 20120101
  9. MORPHINE SULFATE [Suspect]
     Indication: PAIN
     Dosage: 100MG TWO TIMES A DAY WITH 30MG DAILY
  10. FLEXERIL [Concomitant]
     Dosage: 10 MG, 3X/DAY
  11. CHANTIX [Suspect]
     Dosage: UNK, 2X/DAY
     Route: 048
     Dates: start: 20120101, end: 20120101
  12. FENTANYL [Suspect]
     Indication: PAIN
     Dosage: 100 UG TWO PATCH EVERY TWO DAYS
     Route: 062
  13. VALIUM [Concomitant]
     Indication: ANXIETY
     Dosage: 5 MG, DAILY
  14. VALIUM [Concomitant]
     Indication: BACK DISORDER
  15. LISINOPRIL [Concomitant]
     Indication: HYPERTENSION
     Dosage: 20 MG, DAILY
  16. PRAVACHOL [Concomitant]
     Dosage: 40 BEDTIME
  17. AMLODIPINE BESYLATE [Suspect]
     Indication: HYPERTENSION
     Dosage: 10 MG, DAILY
     Dates: start: 20111101
  18. SIMVASTATIN [Concomitant]
     Dosage: UNK, (20)
  19. ZETIA [Concomitant]
     Dosage: UNK,

REACTIONS (6)
  - TINNITUS [None]
  - POOR QUALITY SLEEP [None]
  - ASTHENIA [None]
  - BLOOD PRESSURE INCREASED [None]
  - SOMNOLENCE [None]
  - DRUG INEFFECTIVE [None]
